FAERS Safety Report 5483711-9 (Version None)
Quarter: 2007Q4

REPORT INFORMATION
  Report Type: 
  Country: None (occurrence: None)
  Receive Date: 20071010
  Receipt Date: 20070926
  Transmission Date: 20080405
  Serious: Yes (Hospitalization, Other)
  Sender: FDA-Public Use
  Company Number: 2007BI020749

PATIENT
  Age: 29 Year
  Sex: Female

DRUGS (1)
  1. AVONEX [Suspect]
     Indication: MULTIPLE SCLEROSIS
     Dosage: 30 UG;QW;IM
     Route: 030
     Dates: start: 20050101, end: 20060901

REACTIONS (7)
  - CAESAREAN SECTION [None]
  - FALLOPIAN TUBE OPERATION [None]
  - HYPOAESTHESIA [None]
  - PRECANCEROUS CELLS PRESENT [None]
  - PREGNANCY [None]
  - UTERINE DISORDER [None]
  - WEIGHT DECREASED [None]
